FAERS Safety Report 19383339 (Version 1)
Quarter: 2021Q2

REPORT INFORMATION
  Report Type: Spontaneous
  Country: FR (occurrence: FR)
  Receive Date: 20210607
  Receipt Date: 20210607
  Transmission Date: 20210717
  Serious: Yes (Other)
  Sender: FDA-Public Use
  Company Number: FR-MYLANLABS-2021M1032488

PATIENT
  Age: 44 Year
  Sex: Male
  Weight: 58 kg

DRUGS (6)
  1. RIFAMPICINE [Concomitant]
     Active Substance: RIFAMPIN
     Indication: TUBERCULOSIS
     Dosage: UNK
     Route: 042
     Dates: start: 20200820, end: 20200909
  2. ISONIAZID MYLAN [Suspect]
     Active Substance: ISONIAZID
     Indication: TUBERCULOSIS
     Dosage: 200 MILLIGRAM
     Route: 042
     Dates: start: 20200820, end: 20201127
  3. LEVOFLOXACIN MYLAN [Suspect]
     Active Substance: LEVOFLOXACIN
     Indication: TUBERCULOSIS
     Dosage: 500 MILLIGRAM, BID
     Route: 042
     Dates: start: 20200828, end: 20201127
  4. ETHAMBUTOL [Suspect]
     Active Substance: ETHAMBUTOL HYDROCHLORIDE
     Indication: TUBERCULOSIS
     Dosage: 1000 MILLIGRAM, QD
     Route: 042
     Dates: start: 20200820, end: 20201127
  5. LINEZOLID MYLAN [Suspect]
     Active Substance: LINEZOLID
     Indication: TUBERCULOSIS
     Dosage: 600 MILLIGRAM
     Dates: start: 20201117, end: 20201127
  6. AMIKACIN MYLAN [Suspect]
     Active Substance: AMIKACIN
     Indication: TUBERCULOSIS
     Dosage: 15 MILLIGRAM/KILOGRAM, Q2D
     Route: 042
     Dates: start: 20200828, end: 20201117

REACTIONS (1)
  - Acute kidney injury [Recovered/Resolved]

NARRATIVE: CASE EVENT DATE: 20201113
